FAERS Safety Report 23783597 (Version 1)
Quarter: 2024Q2

REPORT INFORMATION
  Report Type: Spontaneous
  Country: IT (occurrence: IT)
  Receive Date: 20240425
  Receipt Date: 20240425
  Transmission Date: 20240716
  Serious: Yes (Other)
  Sender: FDA-Public Use
  Company Number: None

PATIENT
  Age: 61 Year
  Sex: Male

DRUGS (3)
  1. FLUOROURACIL [Suspect]
     Active Substance: FLUOROURACIL
     Indication: Colon cancer
     Dosage: START OF THERAPY 10/2023 - THERAPY EVERY 14 DAYS - III CYCLE - BOLUS INFUSION.?DRUG ALSO ADMINIST...
     Route: 042
     Dates: start: 20231103, end: 20231103
  2. LEVOLEUCOVORIN [Concomitant]
     Active Substance: LEVOLEUCOVORIN
     Indication: Product used for unknown indication
     Route: 065
  3. OXALIPLATIN [Suspect]
     Active Substance: OXALIPLATIN
     Indication: Colon cancer
     Dosage: START OF THERAPY 10/2023 - THERAPY EVERY 14 DAYS - III CYCLE
     Route: 042
     Dates: start: 20231103, end: 20231103

REACTIONS (1)
  - Thrombocytopenia [Recovering/Resolving]

NARRATIVE: CASE EVENT DATE: 20231115
